FAERS Safety Report 7516409-3 (Version None)
Quarter: 2011Q2

REPORT INFORMATION
  Report Type: 
  Country: None (occurrence: None)
  Receive Date: 20110601
  Receipt Date: 20110518
  Transmission Date: 20111010
  Serious: Yes (Hospitalization, Other)
  Sender: FDA-Public Use
  Company Number: US-BAYER-201032567NA

PATIENT
  Age: 23 Year
  Sex: Female
  Weight: 58.957 kg

DRUGS (7)
  1. MOTRIN [Concomitant]
  2. ADVAIR DISKUS 100/50 [Concomitant]
  3. IBUPROFEN [Concomitant]
     Route: 048
  4. YASMIN [Suspect]
     Indication: ORAL CONTRACEPTION
     Dosage: UNK UNK, QD
     Route: 048
     Dates: start: 20070601, end: 20071101
  5. MAXAIR [Concomitant]
  6. DEPO-PROVERA [Concomitant]
     Dosage: 150 MG, UNK
     Route: 030
  7. FERROUS SULFATE TAB [Concomitant]

REACTIONS (2)
  - DEEP VEIN THROMBOSIS [None]
  - POST THROMBOTIC SYNDROME [None]
